FAERS Safety Report 11990019 (Version 1)
Quarter: 2016Q1

REPORT INFORMATION
  Report Type: Spontaneous
  Country: US (occurrence: US)
  Receive Date: 20160202
  Receipt Date: 20160202
  Transmission Date: 20160526
  Serious: No
  Sender: FDA-Public Use
  Company Number: US-ROCHE-1597061

PATIENT
  Age: 8 Year
  Sex: Male

DRUGS (2)
  1. NORDITROPIN [Concomitant]
     Active Substance: SOMATROPIN
  2. NUTROPIN AQ [Suspect]
     Active Substance: SOMATROPIN
     Indication: FOETAL GROWTH RESTRICTION
     Route: 058
     Dates: start: 201505

REACTIONS (2)
  - Pain [Not Recovered/Not Resolved]
  - Injection site pain [Not Recovered/Not Resolved]

NARRATIVE: CASE EVENT DATE: 20150618
